FAERS Safety Report 23522654 (Version 1)
Quarter: 2024Q1

REPORT INFORMATION
  Report Type: 
  Country: None (occurrence: None)
  Receive Date: 20240214
  Receipt Date: 20240214
  Transmission Date: 20240410
  Serious: No
  Sender: FDA-Public Use
  Company Number: JP-CHUGAI-2023046630

PATIENT
  Age: 70 Year
  Weight: 75.7 kg

DRUGS (6)
  1. ACTEMRA [Suspect]
     Active Substance: TOCILIZUMAB
     Dosage: 600 MILLIGRAM, ONCE/7WEEKS
     Dates: start: 20220825, end: 20231114
  2. PREDNISOLONE [Suspect]
     Active Substance: PREDNISOLONE
     Dosage: 1.5 MILLIGRAM, QD
     Dates: start: 20220523
  3. GASTER [Concomitant]
     Active Substance: FAMOTIDINE
     Dosage: UNK
  4. CLOPIDOGREL [Concomitant]
     Active Substance: CLOPIDOGREL BISULFATE
     Dosage: UNK
  5. CRESTOR [Concomitant]
     Active Substance: ROSUVASTATIN CALCIUM
     Dosage: UNK
     Dates: end: 20231228
  6. DEFERASIROX [Concomitant]
     Active Substance: DEFERASIROX
     Dosage: UNK
     Dates: start: 20230620

REACTIONS (4)
  - Pyelonephritis [None]
  - Acute kidney injury [None]
  - Dehydration [None]
  - Off label use [None]

NARRATIVE: CASE EVENT DATE: 20220825
